FAERS Safety Report 15860431 (Version 1)
Quarter: 2019Q1

REPORT INFORMATION
  Report Type: Spontaneous
  Country: US (occurrence: US)
  Receive Date: 20190123
  Receipt Date: 20190123
  Transmission Date: 20190417
  Serious: Yes (Death)
  Sender: FDA-Public Use
  Company Number: US-DENDREON PHARMACEUTICALS LLC-2019DEN000012

PATIENT

DRUGS (7)
  1. PROVENGE [Suspect]
     Active Substance: SIPULEUCEL-T
     Indication: PROSTATE CANCER METASTATIC
     Dosage: DOSE #1
     Route: 042
     Dates: start: 20181203, end: 20181203
  2. IBUPROFEN. [Concomitant]
     Active Substance: IBUPROFEN
     Indication: CANCER PAIN
  3. PROVENGE [Suspect]
     Active Substance: SIPULEUCEL-T
     Dosage: DOSE #2
     Route: 042
     Dates: start: 20181231, end: 20181231
  4. MEGACE [Concomitant]
     Active Substance: MEGESTROL ACETATE
     Indication: DECREASED APPETITE
  5. FENTANYL. [Concomitant]
     Active Substance: FENTANYL
     Indication: CANCER PAIN
  6. HYDROCODONE [Concomitant]
     Active Substance: HYDROCODONE
     Indication: CANCER PAIN
  7. XGEVA [Concomitant]
     Active Substance: DENOSUMAB
     Indication: METASTASES TO BONE

REACTIONS (3)
  - Urinary retention [Unknown]
  - Small intestinal obstruction [Fatal]
  - Dyspnoea [Unknown]

NARRATIVE: CASE EVENT DATE: 201901
